FAERS Safety Report 4389016-1 (Version None)
Quarter: 2004Q2

REPORT INFORMATION
  Report Type: 
  Country: None (occurrence: None)
  Receive Date: 20040624
  Receipt Date: 20040611
  Transmission Date: 20050107
  Serious: Yes (Hospitalization)
  Sender: FDA-Public Use
  Company Number: HQWYE797203FEB04

PATIENT
  Age: 62 Year
  Sex: Female
  Weight: 71.73 kg

DRUGS (6)
  1. PREMPRO [Suspect]
     Indication: MENOPAUSE
     Dosage: 0.625MG/2.5 MG TABLET DAILY, ORAL
     Route: 048
     Dates: start: 19970101, end: 20031001
  2. AXID [Concomitant]
  3. PROPULSID [Concomitant]
  4. ASPIRIN [Concomitant]
  5. CARDURA [Concomitant]
  6. NORVASC [Concomitant]

REACTIONS (8)
  - ASTHENIA [None]
  - DIZZINESS [None]
  - FEELING ABNORMAL [None]
  - GASTROINTESTINAL DISORDER [None]
  - HAEMOPTYSIS [None]
  - HEART RATE INCREASED [None]
  - METRORRHAGIA [None]
  - STOMACH DISCOMFORT [None]
